FAERS Safety Report 17712512 (Version 1)
Quarter: 2020Q2

REPORT INFORMATION
  Report Type: Spontaneous
  Country: US (occurrence: US)
  Receive Date: 20200425
  Receipt Date: 20200425
  Transmission Date: 20200714
  Serious: Yes (Disabling)
  Sender: FDA-Public Use
  Company Number: None

PATIENT
  Age: 19 Year
  Sex: Female
  Weight: 56.7 kg

DRUGS (1)
  1. NEXPLANON [Suspect]
     Active Substance: ETONOGESTREL
     Dates: start: 20191217, end: 20200313

REACTIONS (5)
  - Cognitive disorder [None]
  - Nervous system disorder [None]
  - Dysgraphia [None]
  - Coordination abnormal [None]
  - Aphasia [None]

NARRATIVE: CASE EVENT DATE: 20200201
